FAERS Safety Report 9160280 (Version 2)
Quarter: 2013Q2

REPORT INFORMATION
  Report Type: Report from Study
  Country: GB (occurrence: GB)
  Receive Date: 20130313
  Receipt Date: 20130531
  Transmission Date: 20140414
  Serious: Yes (Life-Threatening)
  Sender: FDA-Public Use
  Company Number: GB-JNJFOC-20130304885

PATIENT
  Age: 74 Year
  Sex: Male
  Weight: 95 kg

DRUGS (11)
  1. ABIRATERONE [Suspect]
     Indication: PROSTATE CANCER
     Route: 048
     Dates: start: 20130124, end: 20130228
  2. GTN SPRAY [Concomitant]
     Route: 065
  3. METFORMIN [Concomitant]
     Route: 065
  4. AMLODIPINE [Concomitant]
     Route: 065
  5. SIMVASTATIN [Concomitant]
     Route: 065
  6. TAMSULOSIN [Concomitant]
     Route: 065
  7. LOSARTAN [Concomitant]
     Route: 065
  8. SOLIFENACIN [Concomitant]
     Route: 065
  9. ALLOPURINOL [Concomitant]
  10. ATENOLOL [Concomitant]
  11. ASPIRIN [Concomitant]

REACTIONS (1)
  - Acute myocardial infarction [Not Recovered/Not Resolved]
